FAERS Safety Report 6121839-0 (Version None)
Quarter: 2009Q1

REPORT INFORMATION
  Report Type: 
  Country: None (occurrence: None)
  Receive Date: 20090313
  Receipt Date: 20090226
  Transmission Date: 20090719
  Serious: Yes (Life-Threatening, Hospitalization)
  Sender: FDA-Public Use
  Company Number: 2009S1003653

PATIENT
  Age: 70 Year
  Sex: Female

DRUGS (5)
  1. VERAPAMIL [Suspect]
     Indication: ATRIAL FIBRILLATION
     Dosage: 120 MG; TWICE A DAY; ORAL
     Route: 048
  2. ACETYLSALICYLIC ACID SRT [Suspect]
     Indication: POLYCYTHAEMIA
     Dosage: ORAL
     Route: 048
     Dates: end: 20080213
  3. FURORESE [Concomitant]
  4. LEVOTHYROXINE SODIUM [Concomitant]
  5. HYDROXYUREA [Concomitant]

REACTIONS (1)
  - GASTROINTESTINAL HAEMORRHAGE [None]
